FAERS Safety Report 8367596-9 (Version None)
Quarter: 2012Q2

REPORT INFORMATION
  Report Type: 
  Country: None (occurrence: None)
  Receive Date: 20120517
  Receipt Date: 20120514
  Transmission Date: 20120825
  Serious: Yes (Life-Threatening, Hospitalization, Other)
  Sender: FDA-Public Use
  Company Number: PT-AMGEN-PRTSP2011020439

PATIENT
  Age: 31 Year
  Sex: Female
  Weight: 67 kg

DRUGS (14)
  1. NPLATE [Suspect]
     Dosage: 3 MUG/KG, QWK
     Dates: start: 20110207, end: 20110321
  2. NPLATE [Suspect]
     Dosage: 7 MUG/KG, QWK
     Dates: start: 20110705, end: 20110705
  3. NPLATE [Suspect]
     Dosage: 8 MUG/KG, QWK
     Dates: start: 20110711, end: 20110711
  4. NPLATE [Suspect]
     Dosage: 10 MUG/KG, QWK
     Dates: start: 20110725, end: 20110725
  5. NPLATE [Suspect]
     Dosage: 9 MUG/KG, QWK
     Dates: start: 20110718, end: 20110718
  6. VINCRISTINE [Concomitant]
  7. NPLATE [Suspect]
     Dosage: 5 MUG/KG, QWK
     Dates: start: 20110404, end: 20110620
  8. PREDNISOLONE [Concomitant]
     Dosage: 5 MG, QOD
  9. NPLATE [Suspect]
     Dosage: 4 MUG/KG, QWK
     Dates: start: 20110328, end: 20110328
  10. EPSICAPROM [Concomitant]
  11. NPLATE [Suspect]
     Dosage: 6 MUG/KG, QWK
     Dates: start: 20110627, end: 20110627
  12. IVIGLOB-EX [Concomitant]
  13. NPLATE [Suspect]
     Indication: IDIOPATHIC THROMBOCYTOPENIC PURPURA
     Dosage: 1 MUG/KG, QWK
     Dates: start: 20100512, end: 20110124
  14. NPLATE [Suspect]
     Dosage: 2 MUG/KG, QWK
     Dates: start: 20110131

REACTIONS (8)
  - THERAPEUTIC RESPONSE DECREASED [None]
  - HAEMATURIA [None]
  - COUGH [None]
  - PLATELET AGGREGATION [None]
  - PRODUCTIVE COUGH [None]
  - GINGIVAL BLEEDING [None]
  - VIRAL INFECTION [None]
  - LYMPHADENOPATHY [None]
